FAERS Safety Report 14748045 (Version 1)
Quarter: 2018Q2

REPORT INFORMATION
  Report Type: Spontaneous
  Country: US (occurrence: US)
  Receive Date: 20180411
  Receipt Date: 20180411
  Transmission Date: 20180711
  Serious: No
  Sender: FDA-Public Use
  Company Number: PHEH2018US012986

PATIENT
  Sex: Female

DRUGS (1)
  1. ATENOLOL SANDOZ [Suspect]
     Active Substance: ATENOLOL
     Indication: PRODUCT USED FOR UNKNOWN INDICATION
     Dosage: UNK
     Route: 065

REACTIONS (6)
  - Abdominal pain upper [Unknown]
  - Constipation [Unknown]
  - Weight increased [Unknown]
  - Nausea [Unknown]
  - Rash [Unknown]
  - Reaction to excipient [Unknown]
